FAERS Safety Report 5983912-7 (Version None)
Quarter: 2008Q4

REPORT INFORMATION
  Report Type: 
  Country: None (occurrence: None)
  Receive Date: 20081208
  Receipt Date: 20081127
  Transmission Date: 20090506
  Serious: No
  Sender: FDA-Public Use
  Company Number: DE-ELI_LILLY_AND_COMPANY-DE200811006345

PATIENT
  Age: 46 Year
  Sex: Male

DRUGS (2)
  1. DULOXETINE HYDROCHLORIDE [Suspect]
     Dosage: 60 MG, DAILY (1/D)
     Route: 048
     Dates: start: 20080101
  2. SIMVASTATIN [Concomitant]
     Dosage: 10 MG, DAILY (1/D)
     Route: 048

REACTIONS (1)
  - LIVER FUNCTION TEST ABNORMAL [None]
